FAERS Safety Report 26002757 (Version 1)
Quarter: 2025Q4

REPORT INFORMATION
  Report Type: Spontaneous
  Country: US (occurrence: US)
  Receive Date: 20251106
  Receipt Date: 20251106
  Transmission Date: 20260117
  Serious: No
  Sender: CURRAX PHARMACEUTICALS
  Company Number: US-CURRAX PHARMACEUTICALS LLC-US-2025CUR001527

PATIENT
  Age: 43 Year
  Sex: Female

DRUGS (2)
  1. CONTRAVE [Suspect]
     Active Substance: BUPROPION HYDROCHLORIDE\NALTREXONE HYDROCHLORIDE
     Indication: Product used for unknown indication
     Dosage: STRENGTH 8/90 MG TAKE TWO TABLETS BY MOUTH ONCE DAILY
     Route: 048
  2. ALDACTONE [Concomitant]
     Active Substance: SPIRONOLACTONE
     Indication: Product used for unknown indication
     Dosage: UNK

REACTIONS (1)
  - Product prescribing error [Unknown]

NARRATIVE: CASE EVENT DATE: 20250731
